FAERS Safety Report 13049811 (Version 6)
Quarter: 2018Q2

REPORT INFORMATION
  Report Type: Spontaneous
  Country: JP (occurrence: JP)
  Receive Date: 20161221
  Receipt Date: 20180426
  Transmission Date: 20180711
  Serious: Yes (Hospitalization, Other)
  Sender: FDA-Public Use
  Company Number: JP-UNITED THERAPEUTICS-UNT-2016-010698

PATIENT
  Age: 26 Year
  Sex: Male
  Weight: 62 kg

DRUGS (19)
  1. REMODULIN [Suspect]
     Active Substance: TREPROSTINIL
     Dosage: 0.004 ?G/KG, CONTINUING
     Route: 058
  2. REMODULIN [Suspect]
     Active Substance: TREPROSTINIL
     Dosage: 0.004375 ?G/KG, CONTINUING
     Route: 058
     Dates: start: 20160628
  3. REMODULIN [Suspect]
     Active Substance: TREPROSTINIL
     Dosage: 0.0295 ?G/KG, CONTINUING
     Route: 058
  4. FUROSEMIDE                         /00032602/ [Concomitant]
     Active Substance: FUROSEMIDE
     Indication: PULMONARY ARTERIAL HYPERTENSION
     Dosage: UNK
     Route: 048
     Dates: start: 20160826
  5. OPSUMIT [Suspect]
     Active Substance: MACITENTAN
     Dosage: 1 MG, UNK
     Route: 048
     Dates: start: 20161030
  6. REMODULIN [Suspect]
     Active Substance: TREPROSTINIL
     Dosage: 0.005625 ?G/KG, CONTINUING
     Route: 058
     Dates: start: 20160702
  7. VENTAVIS [Concomitant]
     Active Substance: ILOPROST
     Indication: PORTOPULMONARY HYPERTENSION
     Dosage: UNK
     Dates: start: 20160818
  8. SPIRONOLACTONE. [Concomitant]
     Active Substance: SPIRONOLACTONE
     Indication: PULMONARY ARTERIAL HYPERTENSION
     Dosage: UNK
     Route: 048
     Dates: start: 20160826
  9. SPIRONOLACTONE. [Concomitant]
     Active Substance: SPIRONOLACTONE
     Indication: PORTOPULMONARY HYPERTENSION
  10. REMODULIN [Suspect]
     Active Substance: TREPROSTINIL
     Dosage: 0.006875 ?G/KG, CONTINUING
     Route: 058
     Dates: start: 20160709
  11. REMODULIN [Suspect]
     Active Substance: TREPROSTINIL
     Indication: PORTOPULMONARY HYPERTENSION
     Dosage: 0.0675 ?G/KG, CONTINUING
     Route: 041
  12. OPSUMIT [Suspect]
     Active Substance: MACITENTAN
     Indication: PORTOPULMONARY HYPERTENSION
     Dosage: 2 MG, UNK
     Route: 048
     Dates: start: 20161012
  13. VENTAVIS [Concomitant]
     Active Substance: ILOPROST
     Dosage: 20 ?G, UNK
  14. FUROSEMIDE                         /00032602/ [Concomitant]
     Active Substance: FUROSEMIDE
     Indication: PORTOPULMONARY HYPERTENSION
  15. REMODULIN [Suspect]
     Active Substance: TREPROSTINIL
     Indication: PORTOPULMONARY HYPERTENSION
     Dosage: 0.000625 ?G/KG, CONTINUING
     Route: 058
     Dates: start: 20160622, end: 20160918
  16. REMODULIN [Suspect]
     Active Substance: TREPROSTINIL
     Dosage: 0.010625 ?G/KG, CONTINUING
     Route: 058
     Dates: end: 20160929
  17. REMODULIN [Suspect]
     Active Substance: TREPROSTINIL
     Dosage: 0.043125 ?G/KG, CONTINUING
     Route: 058
  18. NAPROXEN. [Suspect]
     Active Substance: NAPROXEN
     Indication: PAIN
     Dosage: UNK
     Route: 065
     Dates: start: 2016
  19. REMODULIN [Suspect]
     Active Substance: TREPROSTINIL
     Dosage: 0.008125 ?G/KG, CONTINUING
     Route: 058
     Dates: start: 20160720

REACTIONS (10)
  - Thrombocytopenia [Not Recovered/Not Resolved]
  - Infusion site pain [Not Recovered/Not Resolved]
  - Infusion site induration [Not Recovered/Not Resolved]
  - Abdominal pain upper [Recovering/Resolving]
  - Vomiting [Recovering/Resolving]
  - Pseudomembranous colitis [Unknown]
  - Diarrhoea [Recovering/Resolving]
  - Device related infection [Unknown]
  - Leukopenia [Unknown]
  - Nausea [Recovered/Resolved]

NARRATIVE: CASE EVENT DATE: 20160623
